FAERS Safety Report 9838214 (Version 1)
Quarter: 2013Q4

REPORT INFORMATION
  Report Type: Spontaneous
  Country: US (occurrence: None)
  Receive Date: 20131205
  Receipt Date: 20131205
  Transmission Date: 20140711
  Serious: Yes (Hospitalization)
  Sender: FDA-Public Use
  Company Number: 163-POMAL-13105345

PATIENT
  Age: 70 Year
  Sex: Male

DRUGS (4)
  1. POMALYST [Suspect]
     Indication: PLASMA CELL MYELOMA
     Dosage: 1 IN 1 D
     Route: 048
     Dates: start: 20130411
  2. MULTIVITAMINS [Concomitant]
  3. HYDROCODONE/ACETAMINOPHEN [Concomitant]
  4. MAGNESIUM [Concomitant]

REACTIONS (1)
  - Pneumonia [None]
